FAERS Safety Report 24172985 (Version 2)
Quarter: 2024Q3

REPORT INFORMATION
  Report Type: Spontaneous
  Country: US (occurrence: US)
  Receive Date: 20240805
  Receipt Date: 20240926
  Transmission Date: 20241017
  Serious: Yes (Other)
  Sender: Unknown Manufacturer
  Company Number: US-BLUEPRINT MEDICINES CORPORATION-2024BUS004432

PATIENT

DRUGS (3)
  1. GAVRETO [Suspect]
     Active Substance: PRALSETINIB
     Indication: Thyroid cancer
     Dosage: 400 MILLIGRAM, QD
     Route: 048
  2. GAVRETO [Suspect]
     Active Substance: PRALSETINIB
     Dosage: 300 MILLIGRAM, QD ON MONDAY, WEDNESDAY, FRIDAY
     Route: 048
  3. GAVRETO [Suspect]
     Active Substance: PRALSETINIB
     Dosage: 200 MILLIGRAM, QD ON TUESDAY, THURSDAY, SATURDAY, SUNDAY
     Route: 048

REACTIONS (7)
  - Full blood count decreased [Unknown]
  - Gait disturbance [Unknown]
  - Malaise [Unknown]
  - Back disorder [Unknown]
  - Asthenia [Unknown]
  - Back pain [Unknown]
  - Neck pain [Unknown]
